FAERS Safety Report 23153359 (Version 1)
Quarter: 2023Q4

REPORT INFORMATION
  Report Type: Spontaneous
  Country: GB (occurrence: GB)
  Receive Date: 20231107
  Receipt Date: 20231107
  Transmission Date: 20240109
  Serious: Yes (Life-Threatening)
  Sender: FDA-Public Use
  Company Number: None

PATIENT
  Age: 22 Year
  Sex: Female
  Weight: 55 kg

DRUGS (2)
  1. AMOXICILLIN [Suspect]
     Active Substance: AMOXICILLIN
     Indication: Ill-defined disorder
     Dosage: UNK
     Route: 065
     Dates: start: 20231101
  2. CLARITHROMYCIN [Concomitant]
     Active Substance: CLARITHROMYCIN
     Indication: Ill-defined disorder
     Dosage: TAKE ONE EVERY 12 HRS
     Route: 065
     Dates: start: 20231101

REACTIONS (2)
  - Dyspnoea [Unknown]
  - Rash [Unknown]

NARRATIVE: CASE EVENT DATE: 20231102
